FAERS Safety Report 7246958-7 (Version None)
Quarter: 2011Q1

REPORT INFORMATION
  Report Type: 
  Country: None (occurrence: None)
  Receive Date: 20110127
  Receipt Date: 20110120
  Transmission Date: 20110831
  Serious: Yes (Hospitalization, Other)
  Sender: FDA-Public Use
  Company Number: US-SANOFI-AVENTIS-2011SA004173

PATIENT
  Age: 72 Year
  Sex: Female

DRUGS (4)
  1. METOPROLOL [Concomitant]
  2. ASPIRIN [Concomitant]
  3. MULTAQ [Suspect]
     Indication: ATRIAL FIBRILLATION
     Route: 048
     Dates: start: 20101001, end: 20110101
  4. VITAMIN B-12 [Concomitant]

REACTIONS (3)
  - BLOOD BILIRUBIN INCREASED [None]
  - MIXED LIVER INJURY [None]
  - HOSPITALISATION [None]
